FAERS Safety Report 15428191 (Version 3)
Quarter: 2018Q4

REPORT INFORMATION
  Report Type: Spontaneous
  Country: BR (occurrence: BR)
  Receive Date: 20180926
  Receipt Date: 20181010
  Transmission Date: 20190204
  Serious: Yes (Other)
  Sender: FDA-Public Use
  Company Number: BR-ABBVIE-18K-020-2498334-00

PATIENT
  Age: 57 Year

DRUGS (2)
  1. HUMIRA [Suspect]
     Active Substance: ADALIMUMAB
     Indication: RHEUMATOID ARTHRITIS
     Route: 058
     Dates: start: 201805, end: 2018
  2. METHOTREXATE. [Concomitant]
     Active Substance: METHOTREXATE
     Indication: RHEUMATOID ARTHRITIS
     Dates: start: 201805, end: 2018

REACTIONS (5)
  - Pleural effusion [Unknown]
  - Ascites [Unknown]
  - Neoplasm [Unknown]
  - Pyrexia [Unknown]
  - Lymphoma [Unknown]

NARRATIVE: CASE EVENT DATE: 2018
